FAERS Safety Report 21012573 (Version 1)
Quarter: 2022Q2

REPORT INFORMATION
  Report Type: Spontaneous
  Country: US (occurrence: US)
  Receive Date: 20220627
  Receipt Date: 20220627
  Transmission Date: 20220721
  Serious: Yes (Life-Threatening, Other)
  Sender: FDA-Public Use
  Company Number: US-ALLERGAN-2220544US

PATIENT

DRUGS (2)
  1. TEFLARO [Suspect]
     Active Substance: CEFTAROLINE FOSAMIL
     Indication: Staphylococcal infection
     Dosage: 200 MG
     Route: 042
     Dates: start: 202205
  2. TEFLARO [Suspect]
     Active Substance: CEFTAROLINE FOSAMIL
     Indication: Endocarditis

REACTIONS (4)
  - Mental status changes [Unknown]
  - Confusional state [Unknown]
  - Posterior reversible encephalopathy syndrome [Unknown]
  - Pathogen resistance [Unknown]
